FAERS Safety Report 9011470 (Version 2)
Quarter: 2013Q1

REPORT INFORMATION
  Report Type: Spontaneous
  Country: US (occurrence: US)
  Receive Date: 20130108
  Receipt Date: 20130211
  Transmission Date: 20140127
  Serious: Yes (Other)
  Sender: FDA-Public Use
  Company Number: US-AMGEN-USASP2012068652

PATIENT
  Age: 36 Year
  Sex: Female
  Weight: 80.27 kg

DRUGS (3)
  1. ENBREL [Suspect]
     Indication: PSORIATIC ARTHROPATHY
     Dosage: 50 MG, QWK
     Route: 058
     Dates: start: 20120112
  2. METHOTREXATE [Concomitant]
     Indication: PSORIATIC ARTHROPATHY
     Dosage: 10 MG, QWK
     Route: 048
     Dates: start: 20121205
  3. PREDNISONE [Concomitant]
     Dosage: 10 MG, QD
     Route: 048
     Dates: start: 20120811, end: 20121022

REACTIONS (1)
  - Chorioretinopathy [Recovering/Resolving]
